FAERS Safety Report 7952802-2 (Version None)
Quarter: 2011Q4

REPORT INFORMATION
  Report Type: 
  Country: None (occurrence: None)
  Receive Date: 20111201
  Receipt Date: 20111122
  Transmission Date: 20120403
  Serious: Yes (Hospitalization, Other)
  Sender: FDA-Public Use
  Company Number: US-ASTRAZENECA-2011SE71229

PATIENT
  Age: 54 Year
  Sex: Female
  Weight: 79.8 kg

DRUGS (10)
  1. NEXIUM [Suspect]
     Route: 048
  2. OMEPRAZOLE [Suspect]
     Route: 048
  3. STOOL SOFTENER STIMULNAT [Concomitant]
  4. HYDROCODON [Concomitant]
  5. NEXIUM [Suspect]
     Indication: ULCER HAEMORRHAGE
     Dosage: DAILY
     Route: 048
     Dates: start: 20080101, end: 20080501
  6. SERTRALINE HYDROCHLORIDE [Concomitant]
  7. QUESEDINE [Concomitant]
  8. LISINOPRIL [Concomitant]
     Indication: BLOOD PRESSURE ABNORMAL
  9. HYDRO-APAP [Concomitant]
  10. ALPRAZOLAM [Concomitant]

REACTIONS (20)
  - CEREBROVASCULAR ACCIDENT [None]
  - NEOPLASM MALIGNANT [None]
  - ANAL CANCER [None]
  - OVARIAN CANCER [None]
  - HERNIA [None]
  - APHAGIA [None]
  - GASTROINTESTINAL PERFORATION [None]
  - DIVERTICULITIS [None]
  - ABDOMINAL DISCOMFORT [None]
  - SCAR [None]
  - OFF LABEL USE [None]
  - PANIC ATTACK [None]
  - VOMITING [None]
  - ILL-DEFINED DISORDER [None]
  - VULVAL CANCER [None]
  - ERUCTATION [None]
  - UTERINE CANCER [None]
  - MEMORY IMPAIRMENT [None]
  - THERAPY CESSATION [None]
  - DRUG INEFFECTIVE [None]
